FAERS Safety Report 12483433 (Version 5)
Quarter: 2018Q3

REPORT INFORMATION
  Report Type: Report from Study
  Country: US (occurrence: US)
  Receive Date: 20160621
  Receipt Date: 20180919
  Transmission Date: 20181010
  Serious: Yes (Hospitalization)
  Sender: FDA-Public Use
  Company Number: PHEH2016US015016

PATIENT
  Age: 27 Year
  Sex: Male
  Weight: 60 kg

DRUGS (12)
  1. PULMOZYME [Concomitant]
     Active Substance: DORNASE ALFA
     Indication: CYSTIC FIBROSIS
     Dosage: UNK UNK, QD
     Route: 055
  2. SINGULAIR [Concomitant]
     Active Substance: MONTELUKAST SODIUM
     Indication: CYSTIC FIBROSIS
     Dosage: UNK UNK, QD
     Route: 048
  3. SYMBICORT [Concomitant]
     Active Substance: BUDESONIDE\FORMOTEROL FUMARATE DIHYDRATE
     Indication: CYSTIC FIBROSIS
     Dosage: UNK UNK, BID
     Route: 055
  4. TOBI PODHALER [Suspect]
     Active Substance: TOBRAMYCIN
     Indication: PSEUDOMONAS INFECTION
  5. ALBUTEROL. [Concomitant]
     Active Substance: ALBUTEROL
     Indication: BRONCHOSPASM
     Dosage: UNK UNK, BID
     Route: 055
  6. SYMDEX?D [Concomitant]
     Indication: CYSTIC FIBROSIS
     Dosage: UNK UNK, BID
     Route: 048
     Dates: start: 20180101
  7. CREON [Concomitant]
     Active Substance: PANCRELIPASE AMYLASE\PANCRELIPASE LIPASE\PANCRELIPASE PROTEASE
     Indication: PANCREATIC FAILURE
     Dosage: UNK UNK, 9QD
     Route: 048
  8. TOBI PODHALER [Suspect]
     Active Substance: TOBRAMYCIN
     Indication: CYSTIC FIBROSIS
     Dosage: UNK UNK, BID (EVERY 28 DAYS)
     Route: 055
  9. HYPERSAL [Concomitant]
     Indication: CYSTIC FIBROSIS
     Dosage: UNK UNK, BID
     Route: 055
  10. ADDERALL [Concomitant]
     Active Substance: AMPHETAMINE ASPARTATE\AMPHETAMINE SULFATE\DEXTROAMPHETAMINE SACCHARATE\DEXTROAMPHETAMINE SULFATE
     Indication: ATTENTION DEFICIT/HYPERACTIVITY DISORDER
     Dosage: UNK UNK, QD
     Route: 048
  11. CAYSTON [Suspect]
     Active Substance: AZTREONAM
     Indication: PRODUCT USED FOR UNKNOWN INDICATION
     Dosage: ALTERNATES BETWEEN TOBI PODHALER AND CAYSTON EVERY 28 DAYS
     Route: 065
  12. LOSAMAX [Concomitant]
     Indication: OSTEOPOROSIS
     Dosage: UNK, QW
     Route: 048

REACTIONS (13)
  - Cystic fibrosis related diabetes [Unknown]
  - Dyspnoea [Unknown]
  - Osteoporosis [Unknown]
  - General physical health deterioration [Unknown]
  - Pseudomonas test positive [Unknown]
  - Vertigo [Unknown]
  - Depression [Unknown]
  - Hypersensitivity [Unknown]
  - Malaise [Unknown]
  - Electrolyte imbalance [Recovered/Resolved]
  - Weight increased [Unknown]
  - Drug resistance [Unknown]
  - Dehydration [Recovered/Resolved]

NARRATIVE: CASE EVENT DATE: 2014
